FAERS Safety Report 14595463 (Version 2)
Quarter: 2018Q1

REPORT INFORMATION
  Report Type: Spontaneous
  Country: FR (occurrence: FR)
  Receive Date: 20180302
  Receipt Date: 20180320
  Transmission Date: 20180509
  Serious: Yes (Hospitalization)
  Sender: FDA-Public Use
  Company Number: FR-ABBVIE-18S-056-2272000-00

PATIENT
  Age: 43 Year
  Sex: Male
  Weight: 54 kg

DRUGS (4)
  1. TRUVADA [Suspect]
     Active Substance: EMTRICITABINE\TENOFOVIR DISOPROXIL FUMARATE
     Indication: HIV TEST POSITIVE
     Route: 048
     Dates: start: 20171208, end: 20180112
  2. NORVIR [Suspect]
     Active Substance: RITONAVIR
     Indication: HIV TEST POSITIVE
     Route: 048
     Dates: start: 20171208, end: 20180112
  3. PREZISTA [Suspect]
     Active Substance: DARUNAVIR ETHANOLATE
     Indication: HIV TEST POSITIVE
     Dosage: 800 MG, COMPRIM? PELLICUL?
     Route: 048
     Dates: start: 20171208, end: 20180112
  4. BACTRIM [Suspect]
     Active Substance: SULFAMETHOXAZOLE\TRIMETHOPRIM
     Indication: PROPHYLAXIS
     Route: 048
     Dates: start: 20171205, end: 20180112

REACTIONS (1)
  - Drug reaction with eosinophilia and systemic symptoms [Recovering/Resolving]

NARRATIVE: CASE EVENT DATE: 20180112
